FAERS Safety Report 4701950-9 (Version None)
Quarter: 2005Q2

REPORT INFORMATION
  Report Type: 
  Country: None (occurrence: None)
  Receive Date: 20050627
  Receipt Date: 20050615
  Transmission Date: 20051028
  Serious: Yes (Other)
  Sender: FDA-Public Use
  Company Number: 2005089744

PATIENT
  Age: 77 Year
  Sex: Female
  Weight: 61.2356 kg

DRUGS (2)
  1. LIPITOR [Suspect]
     Indication: BLOOD CHOLESTEROL INCREASED
  2. ZOCOR [Concomitant]

REACTIONS (5)
  - CARDIAC MURMUR [None]
  - CARDIAC VALVE DISEASE [None]
  - HYPERTENSION [None]
  - MUSCLE SPASMS [None]
  - THERAPY NON-RESPONDER [None]
